FAERS Safety Report 10231366 (Version 1)
Quarter: 2014Q2

REPORT INFORMATION
  Report Type: Spontaneous
  Country: US (occurrence: US)
  Receive Date: 20140611
  Receipt Date: 20140611
  Transmission Date: 20141212
  Serious: Yes (Other)
  Sender: FDA-Public Use
  Company Number: PHEH2014US011364

PATIENT
  Sex: Male

DRUGS (14)
  1. TEGRETOL [Suspect]
     Indication: CONVULSION
     Dosage: 400MG IN THE MORNING AND NOON
  2. TEGRETOL [Suspect]
     Dosage: 200 MG IN THE AFTERNOON
  3. TEGRETOL [Suspect]
     Dosage: 400 MG AT NIGHT
  4. DILANTIN//PHENYTOIN SODIUM [Suspect]
     Dosage: UNK UKN, UNK
  5. TOPAMAX [Concomitant]
     Dosage: UNK UKN, UNK
  6. RISPERIDONE [Concomitant]
     Dosage: UNK UKN, UNK
  7. LYRICA [Concomitant]
     Dosage: UNK UKN, UNK
  8. PRAVASTATIN [Concomitant]
     Dosage: UNK UKN, UNK
  9. OXYCODONE [Concomitant]
     Dosage: UNK UKN, UNK
  10. PRILOSEC [Concomitant]
     Dosage: UNK UKN, UNK
  11. DICLOFENAC [Concomitant]
     Dosage: UNK UKN, UNK
  12. TIZANIDINE [Concomitant]
     Dosage: UNK UKN, UNK
  13. SODIUM BICARBONATE [Concomitant]
     Dosage: UNK UKN, UNK
  14. ZYRTEC [Concomitant]
     Dosage: UNK UKN, UNK

REACTIONS (3)
  - Convulsion [Unknown]
  - Cervical vertebral fracture [Unknown]
  - Foot fracture [Unknown]
